FAERS Safety Report 21636647 (Version 1)
Quarter: 2022Q4

REPORT INFORMATION
  Report Type: Report from Study
  Country: US (occurrence: US)
  Receive Date: 20221124
  Receipt Date: 20221124
  Transmission Date: 20230113
  Serious: Yes (Hospitalization)
  Sender: FDA-Public Use
  Company Number: US-ABBVIE-4211204

PATIENT
  Sex: Female

DRUGS (1)
  1. HUMIRA [Suspect]
     Active Substance: ADALIMUMAB
     Indication: Ankylosing spondylitis
     Route: 058

REACTIONS (7)
  - Ankylosing spondylitis [Unknown]
  - Contusion [Unknown]
  - Throat tightness [Unknown]
  - Gastroenteritis viral [Unknown]
  - Multiple allergies [Unknown]
  - Fall [Unknown]
  - Fatigue [Unknown]
